FAERS Safety Report 25182180 (Version 1)
Quarter: 2025Q2

REPORT INFORMATION
  Report Type: Spontaneous
  Country: US (occurrence: US)
  Receive Date: 20250410
  Receipt Date: 20250410
  Transmission Date: 20250716
  Serious: No
  Sender: OPTINOSE INC
  Company Number: US-OptiNose US, Inc-2024OPT000032

PATIENT
  Sex: Female

DRUGS (1)
  1. XHANCE [Suspect]
     Active Substance: FLUTICASONE PROPIONATE
     Indication: Sinusitis
     Route: 045
     Dates: start: 202312

REACTIONS (8)
  - Illness [Unknown]
  - Sinus congestion [Unknown]
  - Feeling abnormal [Unknown]
  - Condition aggravated [Unknown]
  - Intraocular pressure increased [Unknown]
  - Weight increased [Unknown]
  - Product dose omission issue [Unknown]
  - Intentional device use issue [Unknown]
